FAERS Safety Report 10248596 (Version 1)
Quarter: 2014Q2

REPORT INFORMATION
  Report Type: Spontaneous
  Country: US (occurrence: US)
  Receive Date: 20140620
  Receipt Date: 20140620
  Transmission Date: 20141212
  Serious: Yes (Other)
  Sender: FDA-Public Use
  Company Number: US-AMGEN INC.-USASP2014044988

PATIENT
  Age: 79 Year
  Sex: Female

DRUGS (3)
  1. PROLIA [Suspect]
     Indication: OSTEOPOROSIS POSTMENOPAUSAL
     Dosage: UNK
     Route: 065
  2. CALCIUM [Concomitant]
  3. VITAMIN D                          /00107901/ [Concomitant]
     Dosage: 1000 UNK, UNK

REACTIONS (6)
  - Gait disturbance [Unknown]
  - Dysstasia [Unknown]
  - Arthralgia [Unknown]
  - Joint swelling [Unknown]
  - Arthropathy [Unknown]
  - Pain in extremity [Unknown]
